FAERS Safety Report 9742194 (Version 1)
Quarter: 2013Q4

REPORT INFORMATION
  Report Type: Spontaneous
  Country: US (occurrence: US)
  Receive Date: 20131210
  Receipt Date: 20131210
  Transmission Date: 20140711
  Serious: No
  Sender: FDA-Public Use
  Company Number: US-BAYER-2013-150536

PATIENT
  Age: 57 Year
  Sex: Female
  Weight: 95.24 kg

DRUGS (1)
  1. ALEVE TABLET [Suspect]
     Indication: PAIN IN EXTREMITY
     Dosage: 2 DF, PRN
     Route: 048
     Dates: end: 20131208

REACTIONS (1)
  - Glossodynia [Recovered/Resolved]
